FAERS Safety Report 4667438-9 (Version None)
Quarter: 2005Q2

REPORT INFORMATION
  Report Type: 
  Country: None (occurrence: None)
  Receive Date: 20050519
  Receipt Date: 20050519
  Transmission Date: 20051028
  Serious: No
  Sender: FDA-Public Use
  Company Number: None

PATIENT
  Age: 11 Year
  Sex: Female
  Weight: 42 kg

DRUGS (3)
  1. RANITIDINE [Suspect]
     Indication: PROPHYLAXIS AGAINST GASTROINTESTINAL ULCER
     Dosage: 120MG   BID   ORAL
     Route: 048
     Dates: start: 20050126, end: 20050131
  2. RANITIDINE [Suspect]
     Indication: PROPHYLAXIS AGAINST GASTROINTESTINAL ULCER
     Dosage: 30 MG   Q8HOURS   INTRAVENOU
     Route: 042
     Dates: start: 20050108, end: 20050126
  3. DIAZEPAM [Concomitant]

REACTIONS (1)
  - NEUTROPENIA [None]
